FAERS Safety Report 7866182-4 (Version None)
Quarter: 2011Q4

REPORT INFORMATION
  Report Type: 
  Country: None (occurrence: None)
  Receive Date: 20111028
  Receipt Date: 20110509
  Transmission Date: 20120403
  Serious: No
  Sender: FDA-Public Use
  Company Number: US-GLAXOSMITHKLINE-A0926589A

PATIENT
  Age: 67 Year
  Sex: Female

DRUGS (7)
  1. EFFEXOR [Concomitant]
  2. ALBUTEROL INHALER [Concomitant]
  3. ADVAIR DISKUS 100/50 [Suspect]
     Indication: ASTHMA
     Dosage: 1PUFF PER DAY
     Route: 055
  4. PREDNISONE [Concomitant]
  5. CODEINE SULFATE [Concomitant]
  6. ANTIBIOTIC [Concomitant]
  7. ZESTRIL [Concomitant]

REACTIONS (2)
  - BRONCHITIS [None]
  - WHEEZING [None]
